FAERS Safety Report 15524284 (Version 6)
Quarter: 2019Q3

REPORT INFORMATION
  Report Type: Report from Study
  Country: None (occurrence: US)
  Receive Date: 20181018
  Receipt Date: 20190808
  Transmission Date: 20191004
  Serious: Yes (Other)
  Sender: FDA-Public Use
  Company Number: US-ABBVIE-18K-163-2520679-00

PATIENT
  Sex: Male
  Weight: 124.85 kg

DRUGS (4)
  1. HUMIRA [Suspect]
     Active Substance: ADALIMUMAB
     Dosage: CF
     Route: 058
  2. HUMIRA [Suspect]
     Active Substance: ADALIMUMAB
     Indication: PSORIASIS
     Route: 058
  3. HUMIRA [Suspect]
     Active Substance: ADALIMUMAB
     Indication: PSORIATIC ARTHROPATHY
     Dosage: DOSE INCREASED
     Route: 058
  4. ASA [Concomitant]
     Active Substance: ASPIRIN
     Indication: PRODUCT USED FOR UNKNOWN INDICATION
     Dosage: LOW DOSE

REACTIONS (14)
  - Arthralgia [Recovering/Resolving]
  - Therapeutic product effect incomplete [Unknown]
  - Impaired healing [Not Recovered/Not Resolved]
  - Retinal detachment [Not Recovered/Not Resolved]
  - Post procedural discharge [Unknown]
  - Device dislocation [Not Recovered/Not Resolved]
  - Ventricular tachycardia [Unknown]
  - Surgical failure [Unknown]
  - Therapeutic response shortened [Recovered/Resolved with Sequelae]
  - Neoplasm malignant [Unknown]
  - Prostatic operation [Recovered/Resolved]
  - Cataract [Not Recovered/Not Resolved]
  - Blindness [Not Recovered/Not Resolved]
  - Psoriasis [Not Recovered/Not Resolved]
